FAERS Safety Report 16396895 (Version 3)
Quarter: 2019Q4

REPORT INFORMATION
  Report Type: Not Available
  Country: US (occurrence: US)
  Receive Date: 20190606
  Receipt Date: 20191228
  Transmission Date: 20200122
  Serious: No
  Sender: FDA-Public Use
  Company Number: US-NEUROCRINE BIOSCIENCES INC.-2019NBI01391

PATIENT
  Sex: Female

DRUGS (1)
  1. INGREZZA [Suspect]
     Active Substance: VALBENAZINE
     Indication: TARDIVE DYSKINESIA
     Route: 048
     Dates: start: 20181231, end: 20191122

REACTIONS (10)
  - Weight decreased [Unknown]
  - Drug ineffective [None]
  - Injury [Unknown]
  - Sensory loss [Unknown]
  - Aphasia [Unknown]
  - Breath holding [Unknown]
  - Dyskinesia [Unknown]
  - Tic [Unknown]
  - Tardive dyskinesia [Unknown]
  - Headache [Unknown]
